FAERS Safety Report 4735186-2 (Version None)
Quarter: 2005Q3

REPORT INFORMATION
  Report Type: 
  Country: None (occurrence: None)
  Receive Date: 20050804
  Receipt Date: 20050728
  Transmission Date: 20060218
  Serious: Yes (Other)
  Sender: FDA-Public Use
  Company Number: USA-2005-0020891

PATIENT
  Age: 46 Year
  Sex: Female

DRUGS (11)
  1. OXYCONTIN [Suspect]
     Indication: PAIN
     Dosage: 160 MG, BID, ORAL
     Route: 048
  2. OXYIR  CR (OXYCODONE HYDROCHLORIDE) [Suspect]
     Indication: PAIN
     Dosage: 10 MG,
  3. OXYCODONE HCL [Suspect]
     Indication: PAIN
     Dosage: 5MG
  4. NAPROSYN [Concomitant]
  5. NEURONTIN [Concomitant]
  6. METHOCARBAMOL [Concomitant]
  7. ATENOLOL [Concomitant]
  8. DYRENIUM    (TRIAMTERENE) [Concomitant]
  9. LEXAPRO [Concomitant]
  10. WELLBUTRIN [Concomitant]
  11. SENOKOT-S                   (DOCUSATE SODIUM,SENNOSIDE A+B) [Concomitant]

REACTIONS (4)
  - FALL [None]
  - FRACTURE [None]
  - PAIN [None]
  - SOMNOLENCE [None]
